FAERS Safety Report 18437747 (Version 3)
Quarter: 2023Q1

REPORT INFORMATION
  Report Type: Spontaneous
  Country: US (occurrence: US)
  Receive Date: 20201028
  Receipt Date: 20230206
  Transmission Date: 20230417
  Serious: Yes (Hospitalization)
  Sender: FDA-Public Use
  Company Number: US-PFIZER INC-2020417414

PATIENT
  Age: 73 Year
  Sex: Male
  Weight: 106.5 kg

DRUGS (19)
  1. BOSULIF [Suspect]
     Active Substance: BOSUTINIB MONOHYDRATE
     Indication: Chronic myeloid leukaemia
     Dosage: 400 MG, 1X/DAY
     Route: 048
     Dates: start: 20201023
  2. BOSULIF [Suspect]
     Active Substance: BOSUTINIB MONOHYDRATE
     Dosage: 300 MG, DAILY
     Route: 048
  3. BOSULIF [Suspect]
     Active Substance: BOSUTINIB MONOHYDRATE
     Dosage: 5 DF (EVERY MORNING )
  4. FAMOTIDINE [Concomitant]
     Active Substance: FAMOTIDINE
     Dosage: 10 MG, UNK
  5. ASPIRIN [Concomitant]
     Active Substance: ASPIRIN
     Dosage: UNK
  6. VITAMIN C [Concomitant]
     Active Substance: ASCORBIC ACID
     Dosage: UNK
  7. SAW PALMETTO EXTRACT [Concomitant]
     Dosage: UNK
  8. CALCIUM\VITAMIN D [Concomitant]
     Active Substance: CALCIUM\VITAMIN D
     Dosage: UNK
  9. ZINC [Concomitant]
     Active Substance: ZINC
     Dosage: UNK
  10. FISH OIL [Concomitant]
     Active Substance: FISH OIL
     Dosage: UNK
  11. POTASSIUM CHLORIDE [Concomitant]
     Active Substance: POTASSIUM CHLORIDE
     Dosage: UNK
  12. HYALURONIC ACID [Concomitant]
     Active Substance: HYALURONIC ACID
     Dosage: UNK
  13. GINKGO [Concomitant]
     Active Substance: GINKGO
     Dosage: UNK
  14. GRAPESEED EXTRACT [VITIS VINIFERA SEED] [Concomitant]
     Dosage: UNK
  15. SIMVASTATIN [Concomitant]
     Active Substance: SIMVASTATIN
     Dosage: 5 MG
  16. LISINOPRIL [Concomitant]
     Active Substance: LISINOPRIL
     Dosage: UNK
  17. METFORMIN HYDROCHLORIDE [Concomitant]
     Active Substance: METFORMIN HYDROCHLORIDE
     Dosage: UNK
  18. TASIGNA [Concomitant]
     Active Substance: NILOTINIB
     Dosage: UNK
  19. ASPIRIN [Concomitant]
     Active Substance: ASPIRIN
     Dosage: 81 MG

REACTIONS (2)
  - Atrial fibrillation [Unknown]
  - Fatigue [Unknown]
